FAERS Safety Report 5529660-9 (Version None)
Quarter: 2007Q4

REPORT INFORMATION
  Report Type: 
  Country: None (occurrence: None)
  Receive Date: 20071129
  Receipt Date: 20071120
  Transmission Date: 20080405
  Serious: Yes (Other)
  Sender: FDA-Public Use
  Company Number: FR-PFIZER INC-2007097687

PATIENT
  Age: 65 Year
  Sex: Male

DRUGS (2)
  1. ZOXAN LP [Suspect]
     Indication: BENIGN PROSTATIC HYPERPLASIA
  2. TAMSULOSIN HCL [Suspect]

REACTIONS (1)
  - HYPERSENSITIVITY [None]
